FAERS Safety Report 25791859 (Version 1)
Quarter: 2025Q3

REPORT INFORMATION
  Report Type: Spontaneous
  Country: US (occurrence: US)
  Receive Date: 20250911
  Receipt Date: 20250911
  Transmission Date: 20251020
  Serious: No
  Sender: B. BRAUN MEDICAL INC.
  Company Number: US-B. Braun Medical Inc.-US-BBM-202503309

PATIENT
  Age: 36 Year
  Sex: Female
  Weight: 59.87 kg

DRUGS (1)
  1. SODIUM CHLORIDE [Suspect]
     Active Substance: SODIUM CHLORIDE

REACTIONS (6)
  - Flushing [Unknown]
  - Abdominal pain [Unknown]
  - Nausea [Unknown]
  - Throat tightness [Unknown]
  - Malaise [Unknown]
  - Sensory disturbance [Unknown]
